FAERS Safety Report 7377127-8 (Version None)
Quarter: 2011Q1

REPORT INFORMATION
  Report Type: 
  Country: None (occurrence: None)
  Receive Date: 20110328
  Receipt Date: 20110317
  Transmission Date: 20110831
  Serious: No
  Sender: FDA-Public Use
  Company Number: US-BIOGENIDEC-2011BI010468

PATIENT
  Age: 59 Year
  Sex: Female

DRUGS (1)
  1. TYSABRI [Suspect]
     Indication: MULTIPLE SCLEROSIS
     Route: 042
     Dates: start: 20080214

REACTIONS (7)
  - FALL [None]
  - MULTIPLE SCLEROSIS [None]
  - OSTEOPOROSIS [None]
  - PAIN [None]
  - SPINAL DEFORMITY [None]
  - BACK PAIN [None]
  - CONCUSSION [None]
